FAERS Safety Report 17465237 (Version 2)
Quarter: 2020Q3

REPORT INFORMATION
  Report Type: Report from Study
  Country: US (occurrence: US)
  Receive Date: 20200226
  Receipt Date: 20200318
  Transmission Date: 20201105
  Serious: Yes (Hospitalization, Other)
  Sender: FDA-Public Use
  Company Number: US-BRISTOL-MYERS SQUIBB COMPANY-BMS-2020-016070

PATIENT
  Age: 72 Year
  Sex: Male
  Weight: 84.8 kg

DRUGS (2)
  1. NIVOLUMAB [Suspect]
     Active Substance: NIVOLUMAB
     Indication: CHOLANGIOCARCINOMA
     Dosage: 240 MILLIGRAM, Q2WK
     Route: 042
     Dates: start: 20200212
  2. DKN?01. [Suspect]
     Active Substance: DKN-01
     Indication: CHOLANGIOCARCINOMA
     Dosage: 600 MILLIGRAM, Q2WK
     Route: 042
     Dates: start: 20200212

REACTIONS (3)
  - Metastases to liver [Unknown]
  - Cholangitis [Unknown]
  - Pyrexia [Unknown]

NARRATIVE: CASE EVENT DATE: 202002
